FAERS Safety Report 10395781 (Version 1)
Quarter: 2014Q3

REPORT INFORMATION
  Report Type: Spontaneous
  Country: DE (occurrence: DE)
  Receive Date: 20140820
  Receipt Date: 20140820
  Transmission Date: 20150326
  Serious: Yes (Hospitalization)
  Sender: FDA-Public Use
  Company Number: DE-009507513-1408DEU008796

PATIENT
  Sex: Female

DRUGS (1)
  1. IMPLANON [Suspect]
     Active Substance: ETONOGESTREL
     Indication: CONTRACEPTION
     Dosage: 1 ROD
     Route: 050

REACTIONS (4)
  - Hospitalisation [Unknown]
  - Implant site pain [Unknown]
  - Device deployment issue [Not Recovered/Not Resolved]
  - Device kink [Not Recovered/Not Resolved]
